FAERS Safety Report 6360290-5 (Version None)
Quarter: 2009Q3

REPORT INFORMATION
  Report Type: 
  Country: None (occurrence: None)
  Receive Date: 20090917
  Receipt Date: 20090909
  Transmission Date: 20100115
  Serious: Yes (Disabling, Other)
  Sender: FDA-Public Use
  Company Number: ES-PFIZER INC-2009188402

PATIENT
  Age: 50 Year

DRUGS (2)
  1. CELECOXIB [Suspect]
     Indication: TENDONITIS
     Dosage: 200 MG, 1X/DAY
     Route: 048
     Dates: start: 20081205, end: 20081201
  2. TRIGON [Interacting]
     Indication: RASH
     Dosage: UNK
     Dates: start: 20090116

REACTIONS (4)
  - CLUSTER HEADACHE [None]
  - DRUG INTERACTION [None]
  - HYPERSENSITIVITY [None]
  - RASH [None]
